FAERS Safety Report 12546432 (Version 1)
Quarter: 2016Q3

REPORT INFORMATION
  Report Type: Spontaneous
  Country: FR (occurrence: FR)
  Receive Date: 20160711
  Receipt Date: 20160711
  Transmission Date: 20161109
  Serious: Yes (Life-Threatening, Hospitalization)
  Sender: FDA-Public Use
  Company Number: FR-PFIZER INC-2016331381

PATIENT
  Age: 43 Year
  Sex: Male
  Weight: 98 kg

DRUGS (7)
  1. ALPRAZOLAM. [Suspect]
     Active Substance: ALPRAZOLAM
     Dosage: 20 TABLETS OF 0.25 MG
     Route: 048
     Dates: start: 20160123, end: 20160123
  2. TRAMADOL HYDROCHLORIDE. [Suspect]
     Active Substance: TRAMADOL HYDROCHLORIDE
     Dosage: 30 DF OF 100 MG, SINGLE
     Route: 048
     Dates: start: 20160123, end: 20160123
  3. LYRICA [Suspect]
     Active Substance: PREGABALIN
     Dosage: 15 DF OF 75 MG, SINGLE
     Route: 048
     Dates: start: 20160123, end: 20160123
  4. AMOXICILLIN. [Suspect]
     Active Substance: AMOXICILLIN
     Dosage: 18 DF OF 1 G, SINGLE
     Route: 048
     Dates: start: 20160123, end: 20160123
  5. PARACETAMOL [Suspect]
     Active Substance: ACETAMINOPHEN
     Dosage: 4 DF OF 1 G, SINGLE
     Route: 048
     Dates: start: 20160123, end: 20160123
  6. STRESAM [Suspect]
     Active Substance: ETIFOXINE
     Dosage: 80 DF OF 50 MG, SINGLE
     Route: 048
     Dates: start: 20160123, end: 20160123
  7. PAROXETINE HYDROCHLORIDE. [Suspect]
     Active Substance: PAROXETINE HYDROCHLORIDE
     Dosage: 20 DF OF 20 MG, SINGLE
     Route: 048
     Dates: start: 20160123, end: 20160123

REACTIONS (3)
  - Toxicity to various agents [Recovered/Resolved]
  - Coma [Recovered/Resolved]
  - Suicide attempt [Recovered/Resolved]

NARRATIVE: CASE EVENT DATE: 20160123
